FAERS Safety Report 6021149-6 (Version None)
Quarter: 2008Q4

REPORT INFORMATION
  Report Type: 
  Country: None (occurrence: None)
  Receive Date: 20081229
  Receipt Date: 20081223
  Transmission Date: 20090506
  Serious: Yes (Other)
  Sender: FDA-Public Use
  Company Number: DE-AVENTIS-200813045DE

PATIENT
  Age: 21 Year
  Sex: Male
  Weight: 78 kg

DRUGS (7)
  1. CLEXANE [Suspect]
     Indication: HEART VALVE OPERATION
     Dosage: DOSE: 2X0.8
     Route: 058
     Dates: start: 20081019, end: 20081122
  2. CLEXANE [Suspect]
     Dosage: DOSE: 2X0.7
     Route: 058
     Dates: start: 20081122, end: 20081127
  3. CLEXANE [Suspect]
     Indication: AORTIC VALVE REPLACEMENT
     Dosage: DOSE: 2X0.8
     Route: 058
     Dates: start: 20081019, end: 20081122
  4. CLEXANE [Suspect]
     Dosage: DOSE: 2X0.7
     Route: 058
     Dates: start: 20081122, end: 20081127
  5. MARCUMAR [Concomitant]
     Indication: DRUG USE FOR UNKNOWN INDICATION
     Dosage: DOSE: NOT REPORTED
     Dates: end: 20080101
  6. IBUPROFEN TABLETS [Concomitant]
     Indication: HEADACHE
     Route: 048
     Dates: end: 20081114
  7. NEXIUM [Concomitant]
     Indication: PROPHYLAXIS
     Route: 048
     Dates: end: 20081114

REACTIONS (5)
  - ALANINE AMINOTRANSFERASE INCREASED [None]
  - ASPARTATE AMINOTRANSFERASE INCREASED [None]
  - GAMMA-GLUTAMYLTRANSFERASE INCREASED [None]
  - HEPATITIS TOXIC [None]
  - HEPATOCELLULAR INJURY [None]
